FAERS Safety Report 8128265-3 (Version None)
Quarter: 2012Q1

REPORT INFORMATION
  Report Type: 
  Country: None (occurrence: None)
  Receive Date: 20120210
  Receipt Date: 20120206
  Transmission Date: 20120608
  Serious: Yes (Other)
  Sender: FDA-Public Use
  Company Number: US-ROCHE-793842

PATIENT
  Sex: Male
  Weight: 81.72 kg

DRUGS (2)
  1. ACCUTANE [Suspect]
     Route: 065
     Dates: start: 19960101, end: 19980101
  2. ACCUTANE [Suspect]
     Indication: ACNE
     Route: 065
     Dates: start: 19960501, end: 19970928

REACTIONS (11)
  - SLEEP APNOEA SYNDROME [None]
  - INTERVERTEBRAL DISC DEGENERATION [None]
  - DEPRESSION [None]
  - SUICIDAL IDEATION [None]
  - DYSPNOEA [None]
  - CHEST PAIN [None]
  - IRRITABLE BOWEL SYNDROME [None]
  - COLITIS ULCERATIVE [None]
  - INFLAMMATORY BOWEL DISEASE [None]
  - SUICIDE ATTEMPT [None]
  - ARRHYTHMIA [None]
